FAERS Safety Report 16592491 (Version 1)
Quarter: 2019Q3

REPORT INFORMATION
  Report Type: Spontaneous
  Country: US (occurrence: US)
  Receive Date: 20190718
  Receipt Date: 20190718
  Transmission Date: 20191004
  Serious: No
  Sender: FDA-Public Use
  Company Number: US-NOVOPROD-671552

PATIENT
  Age: 66 Year
  Sex: Female

DRUGS (1)
  1. FIASP [Suspect]
     Active Substance: INSULIN ASPART
     Indication: TYPE 1 DIABETES MELLITUS
     Dosage: 2 UNITS-MEAL, LESS THAN 5 UNITS-PUMP
     Route: 058
     Dates: start: 20190223, end: 20190302

REACTIONS (3)
  - Injection site pain [Recovered/Resolved]
  - Off label use [Unknown]
  - Paraesthesia [Recovered/Resolved]

NARRATIVE: CASE EVENT DATE: 20190223
